FAERS Safety Report 5146874-0 (Version None)
Quarter: 2006Q4

REPORT INFORMATION
  Report Type: 
  Country: None (occurrence: None)
  Receive Date: 20061109
  Receipt Date: 20061018
  Transmission Date: 20070319
  Serious: Yes (Hospitalization)
  Sender: FDA-Public Use
  Company Number: 13537840

PATIENT
  Age: 39 Year
  Sex: Male

DRUGS (3)
  1. COMBIVIR [Suspect]
     Indication: HIV TEST POSITIVE
     Dosage: 2TAB PER DAY
     Route: 048
     Dates: start: 20060412, end: 20060426
  2. EFAVIRENZ [Suspect]
     Indication: HIV TEST POSITIVE
     Dosage: 600MG PER DAY
     Route: 048
     Dates: start: 20060412, end: 20060426
  3. CO-TRIMOXAZOLE [Concomitant]
     Dates: start: 20060303, end: 20060429

REACTIONS (6)
  - ABDOMINAL PAIN [None]
  - BLOOD SODIUM DECREASED [None]
  - COMA [None]
  - NAUSEA [None]
  - RASH [None]
  - VOMITING [None]
